FAERS Safety Report 18749009 (Version 1)
Quarter: 2021Q1

REPORT INFORMATION
  Report Type: Spontaneous
  Country: US (occurrence: US)
  Receive Date: 20210116
  Receipt Date: 20210116
  Transmission Date: 20210419
  Serious: Yes (Hospitalization)
  Sender: FDA-Public Use
  Company Number: US-AUROBINDO-AUR-APL-2021-000456

PATIENT
  Age: 15 Year
  Sex: Male

DRUGS (18)
  1. LOPERAMIDE [Interacting]
     Active Substance: LOPERAMIDE
     Indication: DIARRHOEA
  2. TRAMADOL. [Interacting]
     Active Substance: TRAMADOL
     Dosage: 300 GRAM
     Route: 048
  3. TRAMADOL. [Interacting]
     Active Substance: TRAMADOL
     Dosage: 100 GRAM (FOR THE LAST 10 DAYS)
     Route: 048
  4. TRAMADOL. [Interacting]
     Active Substance: TRAMADOL
     Indication: DETOXIFICATION
     Dosage: 600 MILLIGRAM (FOR FIRST 5 DAYS)
     Route: 048
  5. CHLORPHENIRAMINE. [Interacting]
     Active Substance: CHLORPHENIRAMINE
     Indication: INFLUENZA LIKE ILLNESS
  6. CLONAZEPAM. [Interacting]
     Active Substance: CLONAZEPAM
     Indication: DETOXIFICATION
     Dosage: 2 MILLIGRAM
     Route: 048
  7. TRAMADOL. [Interacting]
     Active Substance: TRAMADOL
     Dosage: 400 GRAM (FOR THE NEXT 5 DAYS)
     Route: 048
  8. HEROIN [Concomitant]
     Active Substance: DIAMORPHINE
     Indication: PRODUCT USED FOR UNKNOWN INDICATION
     Dosage: 1 MILLILITER (ONCE A MONTH)
     Route: 065
  9. CHLORPHENIRAMINE. [Interacting]
     Active Substance: CHLORPHENIRAMINE
     Indication: DETOXIFICATION
     Dosage: 4 MILLIGRAM
     Route: 048
  10. CLONIDINE. [Suspect]
     Active Substance: CLONIDINE
     Indication: DETOXIFICATION
     Dosage: 0.1 MILLIGRAM, 3 TIMES A DAY
     Route: 048
  11. TRAMADOL. [Interacting]
     Active Substance: TRAMADOL
     Dosage: 200 GRAM (FOR THE NEXT 5 DAYS)
     Route: 048
  12. CLONIDINE. [Interacting]
     Active Substance: CLONIDINE
     Indication: AGITATION
  13. CLONAZEPAM. [Interacting]
     Active Substance: CLONAZEPAM
     Indication: SLEEP DISORDER
  14. MARIJUANA [Concomitant]
     Active Substance: CANNABIS SATIVA SUBSP. INDICA TOP
     Indication: PRODUCT USED FOR UNKNOWN INDICATION
     Dosage: UNK UNK, ONCE A DAY
     Route: 065
  15. CLONIDINE. [Interacting]
     Active Substance: CLONIDINE
     Indication: HEART RATE IRREGULAR
  16. LOPERAMIDE [Interacting]
     Active Substance: LOPERAMIDE
     Indication: DETOXIFICATION
     Dosage: 2 MILLIGRAM, TWO TIMES A DAY
     Route: 048
  17. TRAMADOL. [Suspect]
     Active Substance: TRAMADOL
     Indication: DETOXIFICATION
     Dosage: 300 MILLIGRAM (FOR FIRST FIVE DAYS)
     Route: 042
  18. HEROIN [Concomitant]
     Active Substance: DIAMORPHINE
     Indication: PRODUCT USED FOR UNKNOWN INDICATION
     Dosage: UNK UNK, ONCE A DAY
     Route: 065

REACTIONS (3)
  - Drug interaction [Unknown]
  - Abnormal behaviour [Unknown]
  - Aggression [Unknown]
